FAERS Safety Report 11682823 (Version 6)
Quarter: 2018Q2

REPORT INFORMATION
  Report Type: Report from Study
  Country: None (occurrence: US)
  Receive Date: 20151029
  Receipt Date: 20180629
  Transmission Date: 20180711
  Serious: Yes (Hospitalization, Other)
  Sender: FDA-Public Use
  Company Number: US-ABBVIE-15K-163-1489253-00

PATIENT
  Age: 58 Year
  Sex: Male
  Weight: 89.44 kg

DRUGS (13)
  1. TRIPTYLINE [Suspect]
     Active Substance: AMITRIPTYLINE HYDROCHLORIDE
     Indication: PRODUCT USED FOR UNKNOWN INDICATION
     Route: 065
  2. VITAMIN E [Concomitant]
     Active Substance: .ALPHA.-TOCOPHEROL
     Indication: PRODUCT USED FOR UNKNOWN INDICATION
  3. DILTIAZEM HCL ER [Concomitant]
     Active Substance: DILTIAZEM HYDROCHLORIDE
     Indication: HYPERTENSION
  4. BACLOFEN. [Concomitant]
     Active Substance: BACLOFEN
     Indication: PRODUCT USED FOR UNKNOWN INDICATION
  5. ETODOLAC. [Concomitant]
     Active Substance: ETODOLAC
     Indication: PRODUCT USED FOR UNKNOWN INDICATION
  6. HUMIRA [Suspect]
     Active Substance: ADALIMUMAB
     Route: 058
     Dates: start: 201801
  7. VITAMIN C [Concomitant]
     Active Substance: ASCORBIC ACID
     Indication: PRODUCT USED FOR UNKNOWN INDICATION
  8. MAGNESIUM [Concomitant]
     Active Substance: MAGNESIUM
     Indication: PRODUCT USED FOR UNKNOWN INDICATION
  9. HUMIRA [Suspect]
     Active Substance: ADALIMUMAB
     Indication: PSORIASIS
     Route: 058
     Dates: start: 20141219, end: 201801
  10. CAFFEINE. [Suspect]
     Active Substance: CAFFEINE
     Indication: MIGRAINE
     Route: 065
  11. BOTOX [Suspect]
     Active Substance: ONABOTULINUMTOXINA
     Indication: PRODUCT USED FOR UNKNOWN INDICATION
     Route: 065
  12. METOPROLOL TARTRATE. [Concomitant]
     Active Substance: METOPROLOL TARTRATE
     Indication: HYPERTENSION
  13. TRAMADOL. [Concomitant]
     Active Substance: TRAMADOL
     Indication: HYPERTENSION

REACTIONS (36)
  - Procedural pain [Not Recovered/Not Resolved]
  - Psoriasis [Unknown]
  - Influenza [Recovered/Resolved]
  - Nasopharyngitis [Unknown]
  - Influenza like illness [Unknown]
  - Stress [Unknown]
  - Visual impairment [Unknown]
  - Adverse drug reaction [Unknown]
  - Muscular weakness [Recovering/Resolving]
  - Insomnia [Recovering/Resolving]
  - Decreased appetite [Not Recovered/Not Resolved]
  - Ankylosing spondylitis [Unknown]
  - Gastroenteritis viral [Unknown]
  - Arthropod bite [Unknown]
  - Rotator cuff syndrome [Recovered/Resolved]
  - Psoriasis [Recovered/Resolved]
  - Weight decreased [Not Recovered/Not Resolved]
  - Cervical spinal stenosis [Unknown]
  - Device issue [Recovered/Resolved]
  - Hypertension [Unknown]
  - Erythema [Unknown]
  - Mobility decreased [Recovering/Resolving]
  - Ankylosing spondylitis [Recovered/Resolved]
  - Migraine [Not Recovered/Not Resolved]
  - Incorrect dose administered [Recovered/Resolved]
  - Psoriatic arthropathy [Unknown]
  - Musculoskeletal pain [Recovering/Resolving]
  - Rash pruritic [Recovering/Resolving]
  - Nausea [Unknown]
  - Depression [Unknown]
  - Pyrexia [Unknown]
  - Malaise [Unknown]
  - Exfoliative rash [Recovering/Resolving]
  - Arthritis [Unknown]
  - Tremor [Unknown]
  - Scratch [Unknown]

NARRATIVE: CASE EVENT DATE: 201412
